FAERS Safety Report 9730799 (Version 1)
Quarter: 2013Q4

REPORT INFORMATION
  Report Type: Spontaneous
  Country: US (occurrence: US)
  Receive Date: 20131202
  Receipt Date: 20131202
  Transmission Date: 20140711
  Serious: Yes (Other)
  Sender: FDA-Public Use
  Company Number: US-SA-2013SA123744

PATIENT
  Age: 80 Year
  Sex: Male

DRUGS (12)
  1. PLAVIX [Suspect]
     Route: 065
  2. ELIQUIS [Suspect]
     Indication: ATRIAL FIBRILLATION
     Route: 065
  3. WARFARIN [Suspect]
     Route: 065
  4. CODEINE [Concomitant]
  5. LISINOPRIL [Concomitant]
  6. TAMSULOSIN [Concomitant]
  7. ASPIRIN [Concomitant]
  8. COLCHICINE [Concomitant]
  9. GABAPENTIN [Concomitant]
  10. MAGNESIUM [Concomitant]
  11. METFORMIN [Concomitant]
  12. METOPROLOL [Concomitant]

REACTIONS (8)
  - Pain [Unknown]
  - Malaise [Unknown]
  - Terminal state [Unknown]
  - Intracranial haematoma [Recovering/Resolving]
  - Accident [Unknown]
  - Cerebrovascular accident [Unknown]
  - Insomnia [Recovered/Resolved]
  - Restless legs syndrome [Recovered/Resolved]
